FAERS Safety Report 6768649-9 (Version None)
Quarter: 2010Q2

REPORT INFORMATION
  Report Type: 
  Country: None (occurrence: None)
  Receive Date: 20100614
  Receipt Date: 20100602
  Transmission Date: 20101027
  Serious: No
  Sender: FDA-Public Use
  Company Number: FR-PFIZER INC-2010043608

PATIENT
  Age: 61 Year
  Sex: Male
  Weight: 94 kg

DRUGS (5)
  1. LYRICA [Suspect]
     Indication: INTERVERTEBRAL DISC PROTRUSION
     Dosage: 25 MG, 1X/DAY
     Dates: start: 20090621, end: 20090628
  2. LYRICA [Suspect]
     Indication: FORMICATION
  3. LYRICA [Suspect]
     Indication: PAIN
  4. LYRICA [Suspect]
     Indication: PARAESTHESIA
  5. LYRICA [Suspect]
     Indication: DYSAESTHESIA

REACTIONS (1)
  - DISTURBANCE IN ATTENTION [None]
